FAERS Safety Report 20819297 (Version 2)
Quarter: 2022Q2

REPORT INFORMATION
  Report Type: Spontaneous
  Country: SK (occurrence: SK)
  Receive Date: 20220512
  Receipt Date: 20220624
  Transmission Date: 20220721
  Serious: Yes (Hospitalization, Other)
  Sender: FDA-Public Use
  Company Number: SK-VERTEX PHARMACEUTICALS-2022-007082

PATIENT
  Sex: Female

DRUGS (21)
  1. ELEXACAFTOR\IVACAFTOR\TEZACAFTOR [Suspect]
     Active Substance: ELEXACAFTOR\IVACAFTOR\TEZACAFTOR
     Indication: Cystic fibrosis
     Dosage: 2 TABS (75 MG IVACAFTOR/ 50 MG TEZACAFTOR/ 100 MG ELEXACAFTOR) AM
     Route: 048
     Dates: start: 20220410, end: 20220420
  2. KALYDECO [Suspect]
     Active Substance: IVACAFTOR
     Indication: Cystic fibrosis
     Dosage: 1 TABLET IN EVENING
     Route: 048
     Dates: start: 20220410, end: 20220420
  3. CIPROFLOXACIN [Concomitant]
     Active Substance: CIPROFLOXACIN
     Dosage: 2 X 1.5 TAB
     Dates: start: 20220404
  4. AZITHROMYCIN ANHYDROUS [Concomitant]
     Active Substance: AZITHROMYCIN ANHYDROUS
     Dosage: 1 TAB, 3X WEEKLY (MON, WED, FRI)
  5. URSODIOL [Concomitant]
     Active Substance: URSODIOL
     Dosage: 2 TIMES DAILY 1 CAPSULE
  6. ACETYLCYSTEINE [Concomitant]
     Active Substance: ACETYLCYSTEINE
     Dosage: 3X 200 MG LONG TERM TREATMENT
  7. HYPERTONIC [Concomitant]
  8. COLISTIMETHATE SODIUM [Concomitant]
     Active Substance: COLISTIMETHATE SODIUM
     Dosage: INH 2 TIMES DAILY, 1 CAPS
  9. EREVIT [Concomitant]
     Dosage: ONCE DAILY 1 CAPS
  10. KANAVIT [Concomitant]
     Dosage: ONCE DAILY 10 DROPS
  11. VITAMIN AD [Concomitant]
     Active Substance: PETROLATUM
     Dosage: ONCE DAILY 1 CAP
  12. ALFACALCIDOL [Concomitant]
     Active Substance: ALFACALCIDOL
     Dosage: ONCE DAILY 1 TAB
  13. FLUTICASONE PROPIONATE [Concomitant]
     Active Substance: FLUTICASONE PROPIONATE
     Dosage: AQUES NASAL SPARY 2X2 PUFF
  14. SEA WATER [Concomitant]
     Active Substance: SEA WATER
     Indication: Nasal polyps
     Dosage: AS NEEDED
  15. SEA WATER [Concomitant]
     Active Substance: SEA WATER
     Indication: Chronic sinusitis
  16. EBASTINE [Concomitant]
     Active Substance: EBASTINE
     Dosage: 1 TAB ONCE DAILY
  17. LEVERETTE [Concomitant]
  18. PULMOZYME [Concomitant]
     Active Substance: DORNASE ALFA
     Dosage: 1X1 AMPULE DAILY
  19. PHOSPHOLIPID [Concomitant]
     Active Substance: PHOSPHOLIPID
     Dosage: 1 CAPSULE, TID LONG TERM TREATMENT
  20. RHINOCLIR [Concomitant]
     Indication: Nasal polyps
     Dosage: AS NEEDED
  21. RHINOCLIR [Concomitant]
     Indication: Chronic sinusitis

REACTIONS (1)
  - Drug-induced liver injury [Recovering/Resolving]

NARRATIVE: CASE EVENT DATE: 20220420
